FAERS Safety Report 9753137 (Version 1)
Quarter: 2013Q4

REPORT INFORMATION
  Report Type: Spontaneous
  Country: US (occurrence: US)
  Receive Date: 20131213
  Receipt Date: 20131213
  Transmission Date: 20140711
  Serious: No
  Sender: FDA-Public Use
  Company Number: US-GILEAD-2010-0026392

PATIENT
  Sex: Female
  Weight: 74.84 kg

DRUGS (15)
  1. LETAIRIS [Suspect]
     Indication: PULMONARY ARTERIAL HYPERTENSION
     Route: 048
     Dates: start: 20091127
  2. OXYGEN [Concomitant]
  3. FUROSEMIDE [Concomitant]
  4. NIFEDICAL XL [Concomitant]
  5. NITROQUICK [Concomitant]
  6. ALBUTEROL [Concomitant]
  7. PREDNISONE [Concomitant]
  8. ALPRAZOLAM [Concomitant]
  9. CELEXA [Concomitant]
  10. LYRICA [Concomitant]
  11. METHADONE HCL [Concomitant]
  12. TRAMADOL HCL [Concomitant]
  13. AVELOX [Concomitant]
  14. CELLCEPT [Concomitant]
  15. VITAMIN D [Concomitant]

REACTIONS (1)
  - Dyspnoea [Unknown]
